FAERS Safety Report 25587434 (Version 1)
Quarter: 2025Q3

REPORT INFORMATION
  Report Type: Spontaneous
  Country: US (occurrence: US)
  Receive Date: 20250721
  Receipt Date: 20250721
  Transmission Date: 20251020
  Serious: No
  Sender: MYLAN
  Company Number: US-MYLANLABS-2025M1058814

PATIENT
  Sex: Female
  Weight: 77.11 kg

DRUGS (2)
  1. ESTRADIOL TRANSDERMAL SYSTEM [Suspect]
     Active Substance: ESTRADIOL
     Indication: Hormone replacement therapy
     Dosage: 0.075 MILLIGRAM, QD (PER DAY, ONCE WEEKLY)
  2. VITAMINS [Concomitant]
     Active Substance: VITAMINS

REACTIONS (3)
  - Application site erythema [Unknown]
  - Application site irritation [Unknown]
  - Product adhesion issue [Unknown]
